FAERS Safety Report 9713346 (Version 2)
Quarter: 2014Q1

REPORT INFORMATION
  Report Type: Spontaneous
  Country: US (occurrence: US)
  Receive Date: 20131126
  Receipt Date: 20140218
  Transmission Date: 20141002
  Serious: Yes (Other)
  Sender: FDA-Public Use
  Company Number: US-SA-2013SA122050

PATIENT
  Age: 59 Year
  Sex: Female
  Weight: 68.03 kg

DRUGS (7)
  1. ZOLPIDEM TARTRATE [Suspect]
     Indication: SLEEP DISORDER
     Route: 065
     Dates: end: 20131021
  2. SYNTHROID [Concomitant]
     Indication: THYROID DISORDER
     Route: 065
     Dates: start: 1989
  3. FLOVENT [Concomitant]
     Indication: ASTHMA
     Dosage: DOSE:2 PUFF(S)
     Route: 065
     Dates: start: 1999
  4. FLUTICASONE PROPIONATE [Concomitant]
     Indication: ASTHMA
     Dosage: DOSE:-2 SPRAY
     Route: 065
     Dates: start: 1995
  5. ESTRADIOL [Concomitant]
     Indication: HOT FLUSH
     Route: 065
     Dates: start: 2007
  6. LISINOPRIL [Concomitant]
     Indication: HYPERTENSION
     Route: 065
     Dates: start: 2012
  7. HYDROCHLOROTHIAZIDE [Concomitant]
     Indication: HYPERTENSION
     Route: 065
     Dates: start: 2012

REACTIONS (7)
  - Convulsion [Recovered/Resolved]
  - Loss of consciousness [Recovered/Resolved]
  - Musculoskeletal stiffness [Recovered/Resolved]
  - Nausea [Recovered/Resolved]
  - Hallucination [Recovered/Resolved]
  - Abdominal discomfort [Recovered/Resolved]
  - Confusional state [Recovered/Resolved]
